FAERS Safety Report 4793465-7 (Version None)
Quarter: 2005Q4

REPORT INFORMATION
  Report Type: 
  Country: None (occurrence: None)
  Receive Date: 20051011
  Receipt Date: 20050414
  Transmission Date: 20060501
  Serious: No
  Sender: FDA-Public Use
  Company Number: US-BRISTOL-MYERS SQUIBB COMPANY-12933636

PATIENT
  Sex: Female

DRUGS (3)
  1. GLUCOPHAGE XR [Suspect]
     Indication: DIABETES MELLITUS
     Route: 048
     Dates: start: 20050101
  2. GLUCOTROL [Concomitant]
  3. MOBIC [Concomitant]

REACTIONS (2)
  - DIARRHOEA [None]
  - HEADACHE [None]
